FAERS Safety Report 20056528 (Version 1)
Quarter: 2021Q4

REPORT INFORMATION
  Report Type: Spontaneous
  Country: US (occurrence: None)
  Receive Date: 20211111
  Receipt Date: 20211111
  Transmission Date: 20220303
  Serious: No
  Sender: FDA-Public Use
  Company Number: 2021A790019

PATIENT
  Sex: Female

DRUGS (1)
  1. PULMICORT FLEXHALER [Suspect]
     Active Substance: BUDESONIDE
     Indication: Asthma
     Dosage: 1 PUFF TWICE DAILY360UG/INHAL EVERY 12 HOURS
     Route: 055
     Dates: start: 20210804, end: 202108

REACTIONS (3)
  - Oral herpes [Recovered/Resolved]
  - Product use issue [Unknown]
  - Device difficult to use [Not Recovered/Not Resolved]
